FAERS Safety Report 21600421 (Version 1)
Quarter: 2022Q4

REPORT INFORMATION
  Report Type: Spontaneous
  Country: US (occurrence: US)
  Receive Date: 20221116
  Receipt Date: 20221116
  Transmission Date: 20230113
  Serious: No
  Sender: FDA-Public Use
  Company Number: US-BRISTOL-MYERS SQUIBB COMPANY-2022-137888

PATIENT
  Age: 79 Year
  Sex: Male
  Weight: 78 kg

DRUGS (1)
  1. REVLIMID [Suspect]
     Active Substance: LENALIDOMIDE
     Indication: Primary amyloidosis
     Dosage: FREQUENCY: DAILY 14D ON 14 OFF
     Route: 048
     Dates: start: 20210920

REACTIONS (3)
  - Cough [Unknown]
  - Nasopharyngitis [Unknown]
  - Off label use [Unknown]
